FAERS Safety Report 7255957-0 (Version None)
Quarter: 2011Q1

REPORT INFORMATION
  Report Type: 
  Country: None (occurrence: None)
  Receive Date: 20110129
  Receipt Date: 20100601
  Transmission Date: 20110831
  Serious: No
  Sender: FDA-Public Use
  Company Number: US-ABBOTT-10P-163-0648445-00

PATIENT
  Age: 6 Year
  Sex: Male

DRUGS (2)
  1. HUMIRA [Suspect]
     Indication: NEUTROPHILIC PANNICULITIS
     Route: 058
     Dates: start: 20100528
  2. KINERET [Suspect]
     Indication: RHEUMATOID ARTHRITIS
     Dosage: UNKNOWN
     Dates: start: 20100513, end: 20100527

REACTIONS (1)
  - NEUTROPHILIC PANNICULITIS [None]
